FAERS Safety Report 21735502 (Version 2)
Quarter: 2022Q4

REPORT INFORMATION
  Report Type: Spontaneous
  Country: CA (occurrence: CA)
  Receive Date: 20221215
  Receipt Date: 20221227
  Transmission Date: 20230113
  Serious: Yes (Other)
  Sender: FDA-Public Use
  Company Number: CA-TEVA-2022-CA-2834666

PATIENT
  Age: 71 Year
  Sex: Male

DRUGS (3)
  1. DOXORUBICIN [Suspect]
     Active Substance: DOXORUBICIN
     Indication: Hepatocellular carcinoma
     Dosage: A DOXORUBICIN-LIPIODOL EMULSION (100 MG/8 ML 1:1 VOLUME) WAS INJECTED
     Route: 013
     Dates: start: 2020, end: 2020
  2. LIPIODOL [Suspect]
     Active Substance: ETHIODIZED OIL
     Indication: Hepatocellular carcinoma
     Dosage: A DOXORUBICIN-LIPIODOL EMULSION (100 MG/8 ML 1:1 VOLUME) WAS INJECTED
     Route: 013
     Dates: start: 2020, end: 2020
  3. GELFOAM [Suspect]
     Active Substance: GELATIN\THROMBIN HUMAN
     Indication: Hepatocellular carcinoma
     Dosage: SLURRY
     Route: 013
     Dates: start: 2020, end: 2020

REACTIONS (4)
  - Abdominal injury [Recovered/Resolved with Sequelae]
  - Skin injury [Recovered/Resolved with Sequelae]
  - Ulcer [Recovered/Resolved]
  - Dysaesthesia [Not Recovered/Not Resolved]

NARRATIVE: CASE EVENT DATE: 20200101
